FAERS Safety Report 4933184-7 (Version None)
Quarter: 2006Q1

REPORT INFORMATION
  Report Type: 
  Country: None (occurrence: None)
  Receive Date: 20060306
  Receipt Date: 20050606
  Transmission Date: 20060701
  Serious: Yes (Hospitalization)
  Sender: FDA-Public Use
  Company Number: GB-MERCK-0506GBR00106

PATIENT
  Age: 64 Year
  Sex: Male
  Weight: 77 kg

DRUGS (2)
  1. VIOXX [Suspect]
     Indication: ARTHRITIS
     Route: 048
     Dates: start: 19991229, end: 20000801
  2. VIOXX [Suspect]
     Route: 048
     Dates: start: 20020529, end: 20040801

REACTIONS (2)
  - ARTHRITIS BACTERIAL [None]
  - MYOCARDIAL INFARCTION [None]
